FAERS Safety Report 8609993-X (Version None)
Quarter: 2012Q3

REPORT INFORMATION
  Report Type: 
  Country: None (occurrence: None)
  Receive Date: 20120822
  Receipt Date: 20120718
  Transmission Date: 20120928
  Serious: Yes (Hospitalization)
  Sender: FDA-Public Use
  Company Number: JP-009507513-1208JPN005186

PATIENT

DRUGS (11)
  1. TELAVIC [Suspect]
     Indication: HEPATITIS C
     Route: 048
     Dates: start: 20120530, end: 20120602
  2. LOSARTAN POTASSIUM [Concomitant]
     Indication: HYPERTENSION
     Route: 048
  3. ALDACTONE [Concomitant]
     Indication: HYPERTENSION
     Route: 048
     Dates: end: 20120622
  4. CELECTOL [Concomitant]
     Indication: HYPERTENSION
     Route: 048
  5. ADALAT CC [Concomitant]
     Indication: HYPERTENSION
     Route: 048
     Dates: start: 20120530
  6. PEG-INTRON [Suspect]
     Indication: HEPATITIS C
     Dosage: 1.0MCG/KG/WEEK
     Route: 058
     Dates: start: 20120530, end: 20120704
  7. TELAVIC [Suspect]
     Route: 048
     Dates: start: 20120604, end: 20120619
  8. URSO 250 [Concomitant]
     Indication: HEPATITIS C
     Route: 048
  9. REBETOL [Suspect]
     Indication: HEPATITIS C
     Route: 048
     Dates: start: 20120530, end: 20120704
  10. TELAVIC [Suspect]
     Route: 048
     Dates: start: 20120619, end: 20120704
  11. GLYCYRON [Concomitant]
     Indication: HEPATITIS C
     Route: 048

REACTIONS (1)
  - RENAL IMPAIRMENT [None]
